FAERS Safety Report 4924498-5 (Version None)
Quarter: 2006Q1

REPORT INFORMATION
  Report Type: 
  Country: None (occurrence: None)
  Receive Date: 20060227
  Receipt Date: 20060217
  Transmission Date: 20060701
  Serious: Yes (Death, Hospitalization)
  Sender: FDA-Public Use
  Company Number: CA-GILEAD-2006-0009247

PATIENT
  Sex: Female
  Weight: 83 kg

DRUGS (5)
  1. VIREAD [Suspect]
     Indication: HIV INFECTION
     Route: 048
     Dates: start: 20050607, end: 20050930
  2. 3TC [Concomitant]
     Indication: HIV INFECTION
     Route: 048
     Dates: start: 20050607, end: 20050930
  3. RITONAVIR [Concomitant]
     Indication: HIV INFECTION
     Route: 048
     Dates: start: 20050607, end: 20050930
  4. TIPRANAVIR [Concomitant]
     Indication: HIV INFECTION
     Route: 048
     Dates: start: 20050607, end: 20050930
  5. T-20 [Concomitant]
     Indication: HIV INFECTION
     Route: 058
     Dates: start: 20050607, end: 20050930

REACTIONS (2)
  - HAEMOLYTIC URAEMIC SYNDROME [None]
  - THROMBOTIC THROMBOCYTOPENIC PURPURA [None]
